FAERS Safety Report 7353944-5 (Version None)
Quarter: 2011Q1

REPORT INFORMATION
  Report Type: 
  Country: None (occurrence: None)
  Receive Date: 20110315
  Receipt Date: 20110301
  Transmission Date: 20110831
  Serious: Yes (Hospitalization)
  Sender: FDA-Public Use
  Company Number: PHHY2011BE08637

PATIENT
  Age: 52 Year
  Sex: Female

DRUGS (4)
  1. IMODIUM [Concomitant]
     Dosage: DAILY
  2. AFINITOR [Suspect]
     Indication: NEUROENDOCRINE TUMOUR
     Dosage: 5 MG, DAILY
     Route: 048
     Dates: start: 20101220, end: 20110106
  3. DURAGESIC-100 [Concomitant]
     Dosage: 12 UG, EVERY 3 DAYS
  4. MOTILIUM [Concomitant]
     Dosage: 10 MG, TID

REACTIONS (2)
  - BLOOD BILIRUBIN INCREASED [None]
  - JAUNDICE [None]
